FAERS Safety Report 12154577 (Version 1)
Quarter: 2016Q1

REPORT INFORMATION
  Report Type: Report from Study
  Country: US (occurrence: US)
  Receive Date: 20160307
  Receipt Date: 20160307
  Transmission Date: 20160526
  Serious: Yes (Hospitalization, Other)
  Sender: FDA-Public Use
  Company Number: US-BAYER-2015-471446

PATIENT
  Age: 63 Year
  Sex: Male

DRUGS (2)
  1. NEXAVAR [Suspect]
     Active Substance: SORAFENIB
     Indication: HEPATOCELLULAR CARCINOMA
     Dosage: 400 MG, BID
     Route: 048
  2. NEXAVAR [Suspect]
     Active Substance: SORAFENIB
     Indication: HEPATOCELLULAR CARCINOMA
     Dosage: 200 MG, BID
     Route: 048
     Dates: start: 20151106

REACTIONS (18)
  - Vascular procedure complication [None]
  - Dry skin [None]
  - Chills [Not Recovered/Not Resolved]
  - Pyrexia [None]
  - Fatigue [Not Recovered/Not Resolved]
  - Pain in extremity [None]
  - Pyrexia [Not Recovered/Not Resolved]
  - Fatigue [None]
  - Pain in extremity [None]
  - Fatigue [None]
  - Increased appetite [Not Recovered/Not Resolved]
  - Myalgia [None]
  - Pain [None]
  - Arthralgia [None]
  - Therapeutic embolisation [None]
  - Stent placement [None]
  - Skin lesion [Recovered/Resolved]
  - Nausea [None]

NARRATIVE: CASE EVENT DATE: 201511
